FAERS Safety Report 23238440 (Version 2)
Quarter: 2023Q4

REPORT INFORMATION
  Report Type: Spontaneous
  Country: CA (occurrence: None)
  Receive Date: 20231129
  Receipt Date: 20231206
  Transmission Date: 20240109
  Serious: Yes (Hospitalization)
  Sender: FDA-Public Use
  Company Number: CA-ROCHE-3464159

PATIENT
  Age: 15 Year
  Sex: Male

DRUGS (1)
  1. MYCOPHENOLATE MOFETIL [Suspect]
     Active Substance: MYCOPHENOLATE MOFETIL
     Indication: Immunosuppression
     Route: 065

REACTIONS (4)
  - Enteritis [Recovered/Resolved]
  - Mouth ulceration [Recovered/Resolved]
  - Odynophagia [Recovered/Resolved]
  - Weight decreased [Recovered/Resolved]
